FAERS Safety Report 5717567-3 (Version None)
Quarter: 2008Q2

REPORT INFORMATION
  Report Type: 
  Country: None (occurrence: None)
  Receive Date: 20080425
  Receipt Date: 20080425
  Transmission Date: 20081010
  Serious: Yes (Death)
  Sender: FDA-Public Use
  Company Number: None

PATIENT
  Age: 81 Year
  Sex: Female
  Weight: 54.4316 kg

DRUGS (7)
  1. HEPARIN [Suspect]
  2. FENTENYL [Concomitant]
  3. MILRINONE LACTATE [Concomitant]
  4. DOPAMINE HCL [Concomitant]
  5. MIDAZOLAN [Concomitant]
  6. SODIUM CHLORIDE INJ [Concomitant]
  7. MAGNESIUM SULFATE [Concomitant]

REACTIONS (1)
  - WHITE CLOT SYNDROME [None]
